FAERS Safety Report 8886783 (Version 2)
Quarter: 2012Q4

REPORT INFORMATION
  Report Type: 
  Country: US (occurrence: US)
  Receive Date: 20121105
  Receipt Date: 20121226
  Transmission Date: 20130627
  Serious: No
  Sender: FDA-Public Use
  Company Number: US-VERTEX PHARMACEUTICAL INC.-2012-023985

PATIENT
  Age: 63 Year
  Sex: Male
  Weight: 79 kg

DRUGS (4)
  1. VX-950 (TELAPREVIR) [Suspect]
     Indication: HEPATITIS C
     Dosage: 750 mg, tid
     Route: 048
     Dates: start: 201210
  2. PEGASYS [Suspect]
     Indication: HEPATITIS C
     Dosage: 180 ?g, qw
     Route: 058
     Dates: start: 201210
  3. RIBASPHERE [Suspect]
     Indication: HEPATITIS C
     Dosage: 600 mg, bid
     Route: 048
     Dates: start: 201210
  4. RIBASPHERE [Suspect]
     Dosage: 2 DF, UNK

REACTIONS (8)
  - Dyspnoea [Unknown]
  - Injection site rash [Unknown]
  - Injection site pruritus [Unknown]
  - Fatigue [Unknown]
  - Rash pruritic [Unknown]
  - Anaemia [Unknown]
  - Nausea [Unknown]
  - Vomiting [Unknown]
